FAERS Safety Report 9706674 (Version 3)
Quarter: 2013Q4

REPORT INFORMATION
  Report Type: Report from Study
  Country: CA (occurrence: CA)
  Receive Date: 20131125
  Receipt Date: 20131126
  Transmission Date: 20140711
  Serious: No
  Sender: FDA-Public Use
  Company Number: CA-ROCHE-1305818

PATIENT
  Age: 64 Year
  Sex: Male
  Weight: 79.4 kg

DRUGS (11)
  1. RITUXAN [Suspect]
     Indication: GRANULOMATOSIS WITH POLYANGIITIS
     Route: 042
     Dates: start: 20131114
  2. MYCOPHENOLATE MOFETIL [Concomitant]
     Route: 065
  3. ACETAMINOPHEN [Concomitant]
     Indication: PREMEDICATION
     Route: 048
     Dates: start: 20131114
  4. PREDNISONE [Concomitant]
     Route: 065
  5. AMLODIPINE [Concomitant]
     Route: 065
  6. GABAPENTIN [Concomitant]
     Route: 065
  7. ALENDRONATE [Concomitant]
     Route: 065
  8. ZOPICLONE [Concomitant]
     Route: 065
  9. ULTRAM [Concomitant]
  10. TECTA [Concomitant]
  11. INSULIN (HUMULIN N) [Concomitant]

REACTIONS (1)
  - Infusion related reaction [Recovered/Resolved]
